FAERS Safety Report 24934486 (Version 1)
Quarter: 2025Q1

REPORT INFORMATION
  Report Type: Report from Study
  Country: US (occurrence: US)
  Receive Date: 20250206
  Receipt Date: 20250206
  Transmission Date: 20250409
  Serious: No
  Sender: EXELIXIS
  Company Number: US-EXELIXIS-EXL-2024-001845

PATIENT
  Sex: Female
  Weight: 62.4 kg

DRUGS (14)
  1. CABOMETYX [Suspect]
     Active Substance: CABOZANTINIB S-MALATE
     Indication: Neuroendocrine tumour
     Dosage: 20 MG, QD
     Route: 048
  2. CABOMETYX [Suspect]
     Active Substance: CABOZANTINIB S-MALATE
     Indication: Metastatic carcinoid tumour
     Route: 048
  3. CABOMETYX [Suspect]
     Active Substance: CABOZANTINIB S-MALATE
     Indication: Metastases to liver
  4. LANREOTIDE [Suspect]
     Active Substance: LANREOTIDE
     Indication: Neuroendocrine tumour
     Dosage: UNK UNK, Q4WEEKS
     Dates: start: 201904, end: 201910
  5. LANREOTIDE [Suspect]
     Active Substance: LANREOTIDE
     Indication: Metastatic carcinoid tumour
     Dosage: 120 MG, Q3WEEKS
     Route: 042
     Dates: start: 202007
  6. LANREOTIDE [Suspect]
     Active Substance: LANREOTIDE
     Indication: Metastases to liver
  7. ACETAMINOPHEN [Concomitant]
     Active Substance: ACETAMINOPHEN
  8. CALCIUM CARBONATE\VITAMIN D [Concomitant]
     Active Substance: CALCIUM CARBONATE\VITAMIN D
  9. EPINEPHRINE [Concomitant]
     Active Substance: EPINEPHRINE
  10. ESTRADIOL [Concomitant]
     Active Substance: ESTRADIOL
  11. LEVOTHYROXINE [Concomitant]
     Active Substance: LEVOTHYROXINE
  12. MAGNESIUM CITRATE [Concomitant]
     Active Substance: MAGNESIUM CITRATE
  13. VITAMINS [Concomitant]
     Active Substance: VITAMINS
  14. ENALAPRIL MALEATE\HYDROCHLOROTHIAZIDE [Concomitant]
     Active Substance: ENALAPRIL MALEATE\HYDROCHLOROTHIAZIDE

REACTIONS (9)
  - Alopecia [Unknown]
  - Blood pressure increased [Unknown]
  - Fatigue [Recovering/Resolving]
  - Decreased appetite [Recovering/Resolving]
  - Dry skin [Unknown]
  - Stomatitis [Unknown]
  - Hepatic pain [Recovering/Resolving]
  - Hair texture abnormal [Unknown]
  - Off label use [Unknown]
